FAERS Safety Report 11192151 (Version 1)
Quarter: 2015Q2

REPORT INFORMATION
  Report Type: Spontaneous
  Country: US (occurrence: None)
  Receive Date: 20150615
  Receipt Date: 20150615
  Transmission Date: 20150821
  Serious: No
  Sender: FDA-Public Use
  Company Number: None

PATIENT
  Age: 59 Year
  Sex: Female

DRUGS (1)
  1. SYNVISC [Suspect]
     Active Substance: HYALURONATE SODIUM
     Indication: OSTEOARTHRITIS
     Dosage: INJ INTO BILATERAL KNEES AS DIRECTED
     Dates: start: 20120828, end: 20150424

REACTIONS (3)
  - Abasia [None]
  - Pain [None]
  - Swelling [None]

NARRATIVE: CASE EVENT DATE: 20150610
